FAERS Safety Report 20665437 (Version 3)
Quarter: 2022Q3

REPORT INFORMATION
  Report Type: Report from Study
  Country: US (occurrence: US)
  Receive Date: 20220402
  Receipt Date: 20220916
  Transmission Date: 20221026
  Serious: Yes (Other)
  Sender: FDA-Public Use
  Company Number: US-BRISTOL-MYERS SQUIBB COMPANY-2022-012579

PATIENT
  Age: 66 Year
  Sex: Female
  Weight: 61 kg

DRUGS (1)
  1. POMALYST [Suspect]
     Active Substance: POMALIDOMIDE
     Indication: Plasma cell myeloma in remission
     Dosage: DAILY
     Route: 048
     Dates: start: 20211209

REACTIONS (5)
  - Fatigue [Unknown]
  - Neuropathy peripheral [Unknown]
  - Flushing [Unknown]
  - Pruritus [Unknown]
  - Back pain [Unknown]

NARRATIVE: CASE EVENT DATE: 20220321
